FAERS Safety Report 23015301 (Version 1)
Quarter: 2023Q4

REPORT INFORMATION
  Report Type: Report from Study
  Country: US (occurrence: US)
  Receive Date: 20231002
  Receipt Date: 20231002
  Transmission Date: 20240110
  Serious: Yes (Hospitalization)
  Sender: FDA-Public Use
  Company Number: US-JNJFOC-20230956462

PATIENT
  Age: 8 Decade
  Sex: Male

DRUGS (4)
  1. SPRAVATO [Suspect]
     Active Substance: ESKETAMINE
     Indication: Depression
     Dosage: ^28 MG, 1 TOTAL DOSE^
     Dates: start: 20230711, end: 20230711
  2. SPRAVATO [Suspect]
     Active Substance: ESKETAMINE
     Dosage: ^42 MG, 1 TOTAL DOSE^
     Dates: start: 20230714, end: 20230714
  3. SPRAVATO [Suspect]
     Active Substance: ESKETAMINE
     Dosage: ^56 MG, 1 TOTAL DOSE^
     Dates: start: 20230718, end: 20230718
  4. SPRAVATO [Suspect]
     Active Substance: ESKETAMINE
     Dosage: ^42 MG, 1 TOTAL DOSE^
     Dates: start: 20230721, end: 20230721

REACTIONS (1)
  - Adverse event [Unknown]

NARRATIVE: CASE EVENT DATE: 20230101
